FAERS Safety Report 21722462 (Version 1)
Quarter: 2022Q4

REPORT INFORMATION
  Report Type: Report from Study
  Country: GR (occurrence: GR)
  Receive Date: 20221213
  Receipt Date: 20221213
  Transmission Date: 20230112
  Serious: Yes (Other)
  Sender: FDA-Public Use
  Company Number: GR-ROCHE-3190486

PATIENT
  Age: 64 Year
  Sex: Female
  Weight: 70 kg

DRUGS (12)
  1. DOCETAXEL [Suspect]
     Active Substance: DOCETAXEL
     Indication: HER2 positive breast cancer
     Dosage: MOST RECENT DOSE PRIOR TO AE 04/JUL/2017
     Route: 042
     Dates: start: 20170315
  2. PERTUZUMAB [Suspect]
     Active Substance: PERTUZUMAB
     Indication: HER2 positive breast cancer
     Dosage: MOST RECENT DOSE PRIOR TO THE EVENT: 12/APR/2017
     Route: 042
     Dates: start: 20170315, end: 20170315
  3. LETROZOLE [Suspect]
     Active Substance: LETROZOLE
     Indication: HER2 positive breast cancer
     Dosage: 2.5 MILLIGRAM, QD
     Route: 048
     Dates: start: 20170823
  4. TRASTUZUMAB [Suspect]
     Active Substance: TRASTUZUMAB
     Indication: HER2 positive breast cancer
     Dosage: 600 MILLIGRAM
     Route: 042
     Dates: start: 20170315
  5. ATORVASTATIN [Concomitant]
     Active Substance: ATORVASTATIN
     Indication: Cerebrovascular accident
     Dosage: ONGOING = CHECKED
     Route: 065
     Dates: start: 20210621
  6. CETIRIZINE HYDROCHLORIDE [Concomitant]
     Active Substance: CETIRIZINE HYDROCHLORIDE
     Dosage: ONGOING  CHECKED
     Route: 065
     Dates: start: 20170315
  7. ASPIRIN [Concomitant]
     Active Substance: ASPIRIN
     Indication: Cerebrovascular accident
     Dosage: ONGOING NOT CHECKED
     Route: 065
     Dates: start: 20220510, end: 20220620
  8. ZANTAC [Concomitant]
     Active Substance: RANITIDINE HYDROCHLORIDE
     Dosage: ONGOING = CHECKED
     Route: 065
     Dates: start: 20170315
  9. DEXAMETHASONE [Concomitant]
     Active Substance: DEXAMETHASONE
     Dosage: ONGOING CHECKED
     Route: 065
     Dates: start: 20170315
  10. MATEVER [Concomitant]
     Dosage: ONGOING CHECKED
     Route: 065
     Dates: start: 20170521
  11. ONDANSETRON [Concomitant]
     Active Substance: ONDANSETRON
     Dosage: ONGOING CHECKED
     Route: 065
     Dates: start: 20170315
  12. Calcioral [Concomitant]
     Dosage: ONGOING CHECKED
     Route: 065
     Dates: start: 20171011

REACTIONS (1)
  - Cerebrovascular accident [Recovering/Resolving]

NARRATIVE: CASE EVENT DATE: 20220510
